FAERS Safety Report 4853623-X (Version None)
Quarter: 2005Q4

REPORT INFORMATION
  Report Type: 
  Country: None (occurrence: None)
  Receive Date: 20051125
  Receipt Date: 20050503
  Transmission Date: 20060501
  Serious: Yes (Other)
  Sender: FDA-Public Use
  Company Number: US-JNJFOC-20050402576

PATIENT
  Age: 54 Year
  Sex: Female

DRUGS (2)
  1. LEVAQUIN [Suspect]
     Indication: TONSILLITIS
     Dosage: 500 MG, 1 IN 1 DAY, ORAL
     Route: 048
  2. LEVAQUIN [Suspect]
     Indication: UPPER RESPIRATORY TRACT INFECTION
     Dosage: 500 MG, 1 IN 1 DAY, ORAL
     Route: 048

REACTIONS (2)
  - ANAPHYLACTIC REACTION [None]
  - VISION BLURRED [None]
